FAERS Safety Report 8974090 (Version 1)
Quarter: 2012Q4

REPORT INFORMATION
  Report Type: Spontaneous
  Country: US (occurrence: None)
  Receive Date: 20121217
  Receipt Date: 20121217
  Transmission Date: 20130627
  Serious: Yes (Disabling, Other)
  Sender: FDA-Public Use
  Company Number: None

PATIENT
  Age: 44 Year
  Sex: Male
  Weight: 90.72 kg

DRUGS (1)
  1. ATORVASTATIN CALCIUM [Suspect]
     Indication: HIGH CHOLESTEROL
     Route: 048
     Dates: start: 20110601, end: 20121231

REACTIONS (5)
  - Cognitive disorder [None]
  - Amnesia [None]
  - Activities of daily living impaired [None]
  - Impaired work ability [None]
  - Dysarthria [None]
